FAERS Safety Report 5538382-X (Version None)
Quarter: 2007Q4

REPORT INFORMATION
  Report Type: 
  Country: None (occurrence: None)
  Receive Date: 20071205
  Receipt Date: 20071126
  Transmission Date: 20080405
  Serious: No
  Sender: FDA-Public Use
  Company Number: S07-ITA-00163-01

PATIENT
  Age: 33 Year
  Sex: Female
  Weight: 105 kg

DRUGS (6)
  1. CIPRALEX (ESICTALOPRAM) [Suspect]
     Indication: PANIC ATTACK
     Dosage: 5 MG QD PO
     Route: 048
     Dates: start: 20060701, end: 20060705
  2. ESCITALOPRAM [Suspect]
     Indication: PANIC ATTACK
     Dosage: 15 MG QD PO
     Route: 048
     Dates: start: 20060626, end: 20060630
  3. SEDATOL [Concomitant]
  4. ESCITALOPRAM [Suspect]
     Indication: PANIC ATTACK
     Dosage: 15 MG QD PO
     Route: 048
     Dates: start: 20060621, end: 20060625
  5. ESCITALOPRAM [Suspect]
     Indication: PANIC ATTACK
     Dosage: 20 MG QD PO
     Route: 048
     Dates: start: 20060211, end: 20060621
  6. CIPRALEX (ESCITRALOPAM) [Suspect]
     Indication: POSTPARTUM DEPRESSION

REACTIONS (11)
  - ASPARTATE AMINOTRANSFERASE INCREASED [None]
  - BLOOD POTASSIUM INCREASED [None]
  - CAESAREAN SECTION [None]
  - DRUG EXPOSURE DURING PREGNANCY [None]
  - HAEMATOCRIT INCREASED [None]
  - HYPERTENSION [None]
  - MEAN CELL HAEMOGLOBIN CONCENTRATION INCREASED [None]
  - MEAN CELL VOLUME ABNORMAL [None]
  - POSTPARTUM DEPRESSION [None]
  - PREGNANCY [None]
  - PRESYNCOPE [None]
